FAERS Safety Report 9695687 (Version 1)
Quarter: 2013Q4

REPORT INFORMATION
  Report Type: Spontaneous
  Country: US (occurrence: US)
  Receive Date: 20131119
  Receipt Date: 20131119
  Transmission Date: 20140711
  Serious: No
  Sender: FDA-Public Use
  Company Number: US-VERTEX PHARMACEUTICALS INC-2013-011132

PATIENT
  Sex: Male
  Weight: 86.17 kg

DRUGS (3)
  1. INCIVEK [Suspect]
     Indication: HEPATITIS C
     Dosage: 750 MG, TID
     Route: 048
     Dates: start: 20131014
  2. RIBASPHERE [Suspect]
     Indication: HEPATITIS C
     Dosage: 600 MG, BID
     Route: 048
     Dates: start: 20131014
  3. PEGASYS [Suspect]
     Indication: HEPATITIS C
     Dosage: Q
     Route: 058
     Dates: start: 20131014

REACTIONS (2)
  - Dizziness [Recovered/Resolved]
  - Vision blurred [Not Recovered/Not Resolved]
